FAERS Safety Report 6108045-0 (Version None)
Quarter: 2009Q1

REPORT INFORMATION
  Report Type: 
  Country: None (occurrence: None)
  Receive Date: 20090305
  Receipt Date: 20090305
  Transmission Date: 20090719
  Serious: No
  Sender: FDA-Public Use
  Company Number: None

PATIENT
  Age: 82 Year
  Sex: Male
  Weight: 74.8435 kg

DRUGS (1)
  1. ZYPREXA [Suspect]
     Indication: DEMENTIA
     Dosage: 10 MG ONCE AT BEDTIME DENTAL
     Route: 004
     Dates: start: 20090101, end: 20090304

REACTIONS (2)
  - TOOTH FRACTURE [None]
  - TOOTH LOSS [None]
